FAERS Safety Report 7909225-1 (Version None)
Quarter: 2011Q4

REPORT INFORMATION
  Report Type: 
  Country: None (occurrence: None)
  Receive Date: 20111111
  Receipt Date: 20111107
  Transmission Date: 20120403
  Serious: Yes (Hospitalization)
  Sender: FDA-Public Use
  Company Number: KR-B.I. PHARMACEUTICALS,INC./RIDGEFIELD-2011-RU-00105BP

PATIENT

DRUGS (19)
  1. ATROVENT NEBLIZER SOLN [Concomitant]
     Indication: CHRONIC OBSTRUCTIVE PULMONARY DISEASE
     Dosage: 205 ML
     Route: 048
     Dates: start: 20111106, end: 20111107
  2. AMINOPHYLLIN TAB [Concomitant]
     Indication: CHRONIC OBSTRUCTIVE PULMONARY DISEASE
     Dosage: 300 MG
     Route: 042
     Dates: start: 20111106, end: 20111106
  3. SPIRIVA [Concomitant]
     Dosage: 36 MCG
     Route: 048
     Dates: start: 20111107
  4. PRETREATMENT [Suspect]
     Indication: CHRONIC OBSTRUCTIVE PULMONARY DISEASE
     Dates: start: 20111106, end: 20111107
  5. 0.9% NORMAL SALINE [Concomitant]
     Dosage: 100 ML
     Route: 042
     Dates: start: 20111106, end: 20111107
  6. SYMBICORT [Concomitant]
     Indication: CHRONIC OBSTRUCTIVE PULMONARY DISEASE
     Dosage: 6 PUF
     Route: 048
     Dates: start: 20111107
  7. TRIAL PROCEDURE [Suspect]
     Indication: CHRONIC OBSTRUCTIVE PULMONARY DISEASE
  8. 0.9% NORMAL SALINE [Concomitant]
     Indication: DEHYDRATION
     Dosage: 500 ML
     Route: 042
     Dates: start: 20111106, end: 20111106
  9. SPIRIVA [Suspect]
     Indication: CHRONIC OBSTRUCTIVE PULMONARY DISEASE
     Dosage: 18 MCG
     Route: 048
     Dates: end: 20111024
  10. DEXA S [Concomitant]
     Indication: CHRONIC OBSTRUCTIVE PULMONARY DISEASE
     Dosage: 5 MG
     Route: 042
     Dates: start: 20111106, end: 20111106
  11. 0.9% NORMAL SALINE [Concomitant]
     Indication: UNEVALUABLE EVENT
     Dosage: 100 ML
     Route: 042
     Dates: start: 20111106, end: 20111106
  12. SOLU-MEDROL [Concomitant]
     Indication: CHRONIC OBSTRUCTIVE PULMONARY DISEASE
     Dosage: 125 MG
     Route: 042
     Dates: start: 20111106, end: 20111107
  13. 0.9% NORMAL SALINE [Concomitant]
     Dosage: 100 ML
     Route: 042
     Dates: start: 20111106, end: 20111106
  14. DEXTROSE 5% [Concomitant]
     Indication: UNEVALUABLE EVENT
     Dosage: 500 ML
     Route: 042
     Dates: start: 20111106, end: 20111106
  15. SINGULAIR [Concomitant]
     Indication: PULMONARY FUNCTION TEST
     Dosage: 10 MG
     Route: 048
  16. ALVESCO INHALER 160 [Concomitant]
     Indication: CHRONIC OBSTRUCTIVE PULMONARY DISEASE
     Dosage: 320 MCG
     Route: 048
  17. 5% DEXTROSE SALINE [Concomitant]
     Indication: DEHYDRATION
     Dosage: 1000 ML
     Route: 042
     Dates: start: 20111106, end: 20111107
  18. YAMATETAN [Concomitant]
     Indication: CHRONIC OBSTRUCTIVE PULMONARY DISEASE
     Dosage: 1 G
     Route: 042
     Dates: start: 20111106, end: 20111106
  19. SOLONDO [Concomitant]
     Indication: CHRONIC OBSTRUCTIVE PULMONARY DISEASE
     Dosage: 5 MG
     Route: 048
     Dates: start: 20111107, end: 20111109

REACTIONS (1)
  - CHRONIC OBSTRUCTIVE PULMONARY DISEASE [None]
